FAERS Safety Report 24555562 (Version 1)
Quarter: 2024Q4

REPORT INFORMATION
  Report Type: Spontaneous
  Country: US (occurrence: None)
  Receive Date: 20241025
  Receipt Date: 20241025
  Transmission Date: 20250115
  Serious: Yes (Death, Life-Threatening, Hospitalization, Disabling)
  Sender: Public
  Company Number: None

PATIENT
  Age: 77 Year
  Sex: Male
  Weight: 81 kg

DRUGS (2)
  1. KEYTRUDA [Suspect]
     Active Substance: PEMBROLIZUMAB
     Indication: Malignant melanoma stage II
     Dosage: OTHER FREQUENCY : Q21 DAYS;?
     Route: 040
     Dates: start: 20240719, end: 20240809
  2. noncontributory [Concomitant]

REACTIONS (3)
  - Cardiac failure [None]
  - Arrhythmia [None]
  - Myasthenia gravis [None]

NARRATIVE: CASE EVENT DATE: 20240817
